FAERS Safety Report 19909553 (Version 1)
Quarter: 2021Q3

REPORT INFORMATION
  Report Type: Spontaneous
  Country: US (occurrence: US)
  Receive Date: 20210214
  Receipt Date: 20210214
  Transmission Date: 20211014
  Serious: Yes (Other)
  Sender: FDA-Public Use
  Company Number: None

PATIENT
  Age: 56 Year
  Sex: Male
  Weight: 108 kg

DRUGS (8)
  1. BP MEDS [Concomitant]
  2. VITAMIN D [Concomitant]
     Active Substance: VITAMIN D NOS
  3. VITAMIN C [Concomitant]
     Active Substance: ASCORBIC ACID
  4. BAMLANIVIMAB. [Suspect]
     Active Substance: BAMLANIVIMAB
     Indication: COVID-19
     Dosage: ?          QUANTITY:1 INTRAVENOUS BAG;OTHER FREQUENCY:ONE TIME INFUSION;?
     Route: 042
     Dates: start: 20210210, end: 20210210
  5. METHOTREXATE. [Concomitant]
     Active Substance: METHOTREXATE
  6. XANAX [Concomitant]
     Active Substance: ALPRAZOLAM
  7. MONKLUSTAT [Concomitant]
  8. ZINC. [Concomitant]
     Active Substance: ZINC

REACTIONS (3)
  - Pyrexia [None]
  - Condition aggravated [None]
  - Drug ineffective [None]

NARRATIVE: CASE EVENT DATE: 20210210
